FAERS Safety Report 7031925-9 (Version None)
Quarter: 2010Q4

REPORT INFORMATION
  Report Type: 
  Country: None (occurrence: None)
  Receive Date: 20101001
  Receipt Date: 20100923
  Transmission Date: 20110411
  Serious: Yes (Death)
  Sender: FDA-Public Use
  Company Number: 1000016240

PATIENT
  Age: 29 Year
  Sex: Male
  Weight: 81 kg

DRUGS (3)
  1. CITALOPRAM HYDROBROMIDE [Suspect]
  2. CLOZAPINE [Suspect]
  3. MORPHINE [Suspect]

REACTIONS (2)
  - CHOKING [None]
  - DRUG TOXICITY [None]
